FAERS Safety Report 23680809 (Version 2)
Quarter: 2024Q2

REPORT INFORMATION
  Report Type: Spontaneous
  Country: KR (occurrence: KR)
  Receive Date: 20240328
  Receipt Date: 20240411
  Transmission Date: 20240715
  Serious: Yes (Death, Hospitalization)
  Sender: FDA-Public Use
  Company Number: KR-BoehringerIngelheim-2024-BI-017485

PATIENT
  Age: 69 Year
  Sex: Male
  Weight: 55 kg

DRUGS (8)
  1. GILOTRIF [Suspect]
     Active Substance: AFATINIB
     Indication: Non-small cell lung cancer
     Route: 048
     Dates: start: 20211027, end: 20230515
  2. GILOTRIF [Suspect]
     Active Substance: AFATINIB
     Indication: Metastases to bone
  3. GILOTRIF [Suspect]
     Active Substance: AFATINIB
     Indication: Metastases to central nervous system
  4. SINIL FOLIC ACID [Concomitant]
     Indication: Prophylaxis
     Route: 048
     Dates: start: 20210430
  5. PMG FOLIC ACID [Concomitant]
     Indication: Prophylaxis
     Route: 048
     Dates: start: 20210818
  6. TRODON [Concomitant]
     Indication: Analgesic therapy
     Dates: start: 20210428
  7. TRAGIN [Concomitant]
     Indication: Analgesic therapy
     Route: 048
     Dates: start: 20210929
  8. Magestrol acetate daewon [Concomitant]
     Indication: Prophylaxis
     Route: 048
     Dates: start: 20210707

REACTIONS (4)
  - Malignant neoplasm progression [Fatal]
  - Metastasis [Fatal]
  - Stomatitis [Unknown]
  - Stomatitis [Unknown]

NARRATIVE: CASE EVENT DATE: 20220316
